FAERS Safety Report 7477629-X (Version None)
Quarter: 2011Q2

REPORT INFORMATION
  Report Type: 
  Country: None (occurrence: None)
  Receive Date: 20110513
  Receipt Date: 20110107
  Transmission Date: 20111010
  Serious: Yes (Other)
  Sender: FDA-Public Use
  Company Number: US-BAYER-201031599NA

PATIENT
  Age: 19 Year
  Sex: Female
  Weight: 70.295 kg

DRUGS (13)
  1. YAZ [Suspect]
     Indication: DYSMENORRHOEA
  2. YAZ [Suspect]
     Indication: PREMENSTRUAL SYNDROME
  3. LEVAQUIN [Concomitant]
  4. YASMIN [Suspect]
     Indication: DYSMENORRHOEA
  5. YASMIN [Suspect]
     Indication: PREMENSTRUAL SYNDROME
     Dosage: UNK
     Dates: start: 20081201, end: 20090201
  6. YASMIN [Suspect]
     Indication: POLYCYSTIC OVARIES
  7. DROSPIRENONE AND ETHINYL ESTRADIOL [Suspect]
     Indication: POLYCYSTIC OVARIES
  8. CIPRO [Concomitant]
  9. ZITHROMAX [Concomitant]
  10. DROSPIRENONE AND ETHINYL ESTRADIOL [Suspect]
     Indication: PREMENSTRUAL SYNDROME
     Dosage: UNK
     Dates: start: 20090301, end: 20090801
  11. YAZ [Suspect]
     Indication: POLYCYSTIC OVARIES
     Dosage: UNK
     Route: 048
     Dates: start: 20080401, end: 20081101
  12. DROSPIRENONE AND ETHINYL ESTRADIOL [Suspect]
     Indication: DYSMENORRHOEA
  13. DROSPIRENONE AND ETHINYL ESTRADIOL [Suspect]

REACTIONS (6)
  - GALLBLADDER DISORDER [None]
  - CHOLECYSTITIS CHRONIC [None]
  - ABDOMINAL PAIN [None]
  - BILIARY DYSKINESIA [None]
  - CHOLELITHIASIS [None]
  - PAIN [None]
